FAERS Safety Report 5024150-4 (Version None)
Quarter: 2006Q2

REPORT INFORMATION
  Report Type: 
  Country: None (occurrence: None)
  Receive Date: 20060607
  Receipt Date: 20060603
  Transmission Date: 20061013
  Serious: Yes (Hospitalization)
  Sender: FDA-Public Use
  Company Number: 220075

PATIENT
  Age: 71 Year
  Sex: Male
  Weight: 120 kg

DRUGS (7)
  1. AVASTIN [Suspect]
     Indication: BLADDER CANCER
     Dosage: SINGLE, INTRAVENOUS
     Route: 042
     Dates: start: 20051109
  2. CISPLATIN [Suspect]
     Indication: BLADDER CANCER
     Dosage: SINGLE, INTRAVENOUS
     Route: 042
     Dates: start: 20051109
  3. GEMCITABINE [Suspect]
     Indication: BLADDER CANCER
     Dosage: 1000 MG, INTRAVENOUS
     Route: 042
     Dates: start: 20051109
  4. TOPROL-XL [Concomitant]
  5. FLOMAX [Concomitant]
  6. MEGESTROL (MEGESTROL ACETATE) [Concomitant]
  7. PACKED RED BLOOD CELLS (BLOOD CELLS, RED) [Concomitant]

REACTIONS (1)
  - RENAL FAILURE [None]
